FAERS Safety Report 5287179-7 (Version None)
Quarter: 2007Q1

REPORT INFORMATION
  Report Type: 
  Country: None (occurrence: None)
  Receive Date: 20070330
  Receipt Date: 20070322
  Transmission Date: 20070707
  Serious: Yes (Other)
  Sender: FDA-Public Use
  Company Number: 2007030026

PATIENT
  Age: 30 Year
  Sex: Male

DRUGS (2)
  1. TALOXA (FELBAMATE [Suspect]
     Indication: EPILEPSY
     Dates: start: 20070201
  2. DEPAKENE [Concomitant]

REACTIONS (3)
  - LEUKOPENIA [None]
  - NEUTROPENIA [None]
  - TREMOR [None]
